FAERS Safety Report 9387543 (Version 1)
Quarter: 2013Q3

REPORT INFORMATION
  Report Type: Spontaneous
  Country: US (occurrence: US)
  Receive Date: 20130708
  Receipt Date: 20130708
  Transmission Date: 20140515
  Serious: Yes (Other)
  Sender: FDA-Public Use
  Company Number: US-PFIZER INC-2013198830

PATIENT
  Age: 57 Year
  Sex: Female
  Weight: 93.88 kg

DRUGS (7)
  1. CHANTIX [Suspect]
     Indication: SMOKING CESSATION THERAPY
     Dosage: UNK
  2. ATENOLOL [Concomitant]
     Indication: HYPERTENSION
     Dosage: UNK
  3. BENICAR [Concomitant]
     Indication: HYPERTENSION
     Dosage: UNK
  4. ALLOPURINOL [Concomitant]
     Indication: GOUT
     Dosage: UNK
  5. TRAZODONE [Concomitant]
     Dosage: UNK
  6. WARFARIN [Concomitant]
     Indication: ANTICOAGULANT THERAPY
     Dosage: UNK
  7. DEPAKOTE [Concomitant]
     Indication: AFFECTIVE DISORDER
     Dosage: UNK

REACTIONS (3)
  - Affective disorder [Unknown]
  - Emotional disorder [Unknown]
  - Malaise [Unknown]
